FAERS Safety Report 19471368 (Version 2)
Quarter: 2021Q3

REPORT INFORMATION
  Report Type: Spontaneous
  Country: US (occurrence: US)
  Receive Date: 20210629
  Receipt Date: 20210723
  Transmission Date: 20211014
  Serious: No
  Sender: FDA-Public Use
  Company Number: US-Y-MABS THERAPEUTICS-2113243

PATIENT
  Age: 3 Year
  Sex: Male

DRUGS (6)
  1. DANYELZA [Suspect]
     Active Substance: NAXITAMAB-GQGK
     Indication: NEUROBLASTOMA
     Route: 042
     Dates: start: 20210616, end: 20210622
  2. KETAMINE HYDROCHLORIDE. [Concomitant]
     Active Substance: KETAMINE HYDROCHLORIDE
  3. IRINOTECAN HYDROCHLORIDE. [Concomitant]
     Active Substance: IRINOTECAN HYDROCHLORIDE
  4. MORPHINE SULFATE. [Concomitant]
     Active Substance: MORPHINE SULFATE
  5. LEUKINE [Concomitant]
     Active Substance: SARGRAMOSTIM
  6. TEMODAR [Concomitant]
     Active Substance: TEMOZOLOMIDE

REACTIONS (5)
  - Pain [Recovered/Resolved]
  - Pain [Unknown]
  - Inappropriate schedule of product administration [Unknown]
  - Pain [Recovering/Resolving]
  - Hypotension [Unknown]

NARRATIVE: CASE EVENT DATE: 20210616
